FAERS Safety Report 23084435 (Version 1)
Quarter: 2023Q4

REPORT INFORMATION
  Report Type: Other
  Country: None (occurrence: US)
  Receive Date: 20231019
  Receipt Date: 20231019
  Transmission Date: 20240110
  Serious: Yes (Hospitalization)
  Sender: FDA-Public Use
  Company Number: US-Nuvo Pharmaceuticals Inc-2147267

PATIENT
  Age: 35 Year
  Sex: Male

DRUGS (2)
  1. HYDROXYZINE HYDROCHLORIDE [Suspect]
     Active Substance: HYDROXYZINE HYDROCHLORIDE
     Indication: Anxiety
     Route: 048
  2. RISPERIDONE [Suspect]
     Active Substance: RISPERIDONE
     Route: 048

REACTIONS (2)
  - Priapism [Recovered/Resolved]
  - Product use in unapproved indication [Unknown]
